FAERS Safety Report 7114733-X (Version None)
Quarter: 2010Q4

REPORT INFORMATION
  Report Type: 
  Country: None (occurrence: None)
  Receive Date: 20101117
  Receipt Date: 20101117
  Transmission Date: 20110411
  Serious: Yes (Other)
  Sender: FDA-Public Use
  Company Number: None

PATIENT
  Age: 70 Year
  Sex: Female
  Weight: 54.4316 kg

DRUGS (1)
  1. CYMBALTA [Suspect]
     Indication: DEPRESSION
     Dosage: 20MG ONCE DAILY PO
     Route: 048
     Dates: start: 20100905, end: 20101019

REACTIONS (2)
  - NAUSEA [None]
  - WEIGHT DECREASED [None]
